FAERS Safety Report 5739497-3 (Version None)
Quarter: 2008Q2

REPORT INFORMATION
  Report Type: 
  Country: None (occurrence: None)
  Receive Date: 20080515
  Receipt Date: 20080512
  Transmission Date: 20081010
  Serious: Yes (Other)
  Sender: FDA-Public Use
  Company Number: PHHY2008FI07713

PATIENT
  Sex: Female

DRUGS (1)
  1. DIOVAN [Suspect]
     Dosage: 160 MG

REACTIONS (3)
  - CARDIAC OPERATION [None]
  - MEDICATION RESIDUE [None]
  - STOMACH DISCOMFORT [None]
